FAERS Safety Report 25410809 (Version 1)
Quarter: 2025Q2

REPORT INFORMATION
  Report Type: Spontaneous
  Country: GB (occurrence: GB)
  Receive Date: 20250609
  Receipt Date: 20250609
  Transmission Date: 20250717
  Serious: Yes (Other)
  Sender: NOVO NORDISK
  Company Number: GB-MHRA-MIDB-e0439e90-9204-4aad-9a0f-4961ffe15b6f

PATIENT
  Age: 25 Year

DRUGS (2)
  1. TIRZEPATIDE [Suspect]
     Active Substance: TIRZEPATIDE
     Indication: Polycystic ovarian syndrome
  2. OZEMPIC [Suspect]
     Active Substance: SEMAGLUTIDE
     Indication: Polycystic ovarian syndrome

REACTIONS (6)
  - Faeces discoloured [Unknown]
  - Melaena [Unknown]
  - Breath odour [Unknown]
  - Diarrhoea [Unknown]
  - Eructation [Unknown]
  - Product use in unapproved indication [Unknown]
